FAERS Safety Report 11842769 (Version 2)
Quarter: 2015Q4

REPORT INFORMATION
  Report Type: Spontaneous
  Country: FR (occurrence: FR)
  Receive Date: 20151216
  Receipt Date: 20151217
  Transmission Date: 20160305
  Serious: Yes (Hospitalization)
  Sender: FDA-Public Use
  Company Number: FR-ASTRAZENECA-2015SF20531

PATIENT
  Age: 80 Year
  Sex: Female
  Weight: 60 kg

DRUGS (14)
  1. OMEPRAZOLE. [Suspect]
     Active Substance: OMEPRAZOLE
     Route: 048
  2. CANDESARTAN [Concomitant]
     Active Substance: CANDESARTAN
  3. TRIMETHOPRIM/SULFAMETHOXAZOLE [Concomitant]
     Active Substance: SULFAMETHOXAZOLE\TRIMETHOPRIM
     Indication: PNEUMOCYSTIS JIROVECII PNEUMONIA
  4. ATORVASTATIN [Interacting]
     Active Substance: ATORVASTATIN
     Route: 065
  5. MELPHALAN [Concomitant]
     Active Substance: MELPHALAN
     Dosage: 9 MG/M2 (16 MG) FROM DAY 1 TO 4
  6. CALCIUM FOLINATE [Concomitant]
     Active Substance: LEUCOVORIN CALCIUM
  7. MELPHALAN [Concomitant]
     Active Substance: MELPHALAN
     Dosage: 4 CONSECUTIVE DAYS.
  8. BORTEZOMIB [Concomitant]
     Active Substance: BORTEZOMIB
     Dosage: ON DAYS 1, 4, 8 AND 11 IN THE OUTPATIENT HAEMATOLOGY CLINIC.
     Route: 058
  9. SOTALOL. [Concomitant]
     Active Substance: SOTALOL
  10. TRIMETHOPRIM/SULFAMETHOXAZOLE [Concomitant]
     Active Substance: SULFAMETHOXAZOLE\TRIMETHOPRIM
     Indication: PNEUMOCYSTIS JIROVECII PNEUMONIA
     Dosage: 160/800 MG THREE TIMES A WEEK
  11. TRIMETHOPRIM/SULFAMETHOXAZOLE [Concomitant]
     Active Substance: SULFAMETHOXAZOLE\TRIMETHOPRIM
     Indication: PNEUMOCYSTIS JIROVECII PNEUMONIA
     Dosage: ON DAY 26,
  12. VALACICLOVIR [Concomitant]
     Active Substance: VALACYCLOVIR HYDROCHLORIDE
  13. PREDNISONE. [Concomitant]
     Active Substance: PREDNISONE
     Dosage: 60 MG/M2
  14. BORTEZOMIB [Concomitant]
     Active Substance: BORTEZOMIB
     Dosage: 1.3 MG/M2 (DAY 1, 4, 8, 11, 22, 25, 29, 32).

REACTIONS (2)
  - Drug interaction [Unknown]
  - Muscular weakness [Unknown]
